FAERS Safety Report 23109442 (Version 1)
Quarter: 2023Q4

REPORT INFORMATION
  Report Type: Spontaneous
  Country: US (occurrence: None)
  Receive Date: 20231024
  Receipt Date: 20231024
  Transmission Date: 20240110
  Serious: Yes (Hospitalization)
  Sender: FDA-Public Use
  Company Number: None

PATIENT
  Age: 44 Year
  Sex: 0
  Weight: 123 kg

DRUGS (1)
  1. EMPAGLIFLOZIN [Suspect]
     Active Substance: EMPAGLIFLOZIN

REACTIONS (4)
  - Euglycaemic diabetic ketoacidosis [None]
  - Nausea [None]
  - Wrong product administered [None]
  - Diarrhoea [None]

NARRATIVE: CASE EVENT DATE: 20220709
